FAERS Safety Report 13600931 (Version 1)
Quarter: 2017Q2

REPORT INFORMATION
  Report Type: Spontaneous
  Country: US (occurrence: US)
  Receive Date: 20170531
  Receipt Date: 20170531
  Transmission Date: 20170830
  Serious: No
  Sender: FDA-Public Use
  Company Number: None

PATIENT
  Age: 59 Year
  Sex: Male

DRUGS (1)
  1. CILOSTAZOL. [Suspect]
     Active Substance: CILOSTAZOL
     Indication: PERIPHERAL ARTERIAL OCCLUSIVE DISEASE
     Dates: start: 20161207, end: 20170118

REACTIONS (4)
  - Atrial fibrillation [None]
  - Ventricular tachycardia [None]
  - Headache [None]
  - Hypotension [None]

NARRATIVE: CASE EVENT DATE: 20170118
